FAERS Safety Report 25556784 (Version 2)
Quarter: 2025Q3

REPORT INFORMATION
  Report Type: Spontaneous
  Country: US (occurrence: US)
  Receive Date: 20250715
  Receipt Date: 20250731
  Transmission Date: 20251020
  Serious: No
  Sender: BAUSCH AND LOMB
  Company Number: US-BAUSCHBL-2025BNL011044

PATIENT
  Age: 74 Year
  Sex: Female

DRUGS (4)
  1. MIEBO [Suspect]
     Active Substance: PERFLUOROHEXYLOCTANE
     Indication: Dry eye
     Dosage: ONE DROP IN EACH EYE TWICE A DAY
     Route: 047
     Dates: start: 202506
  2. MIEBO [Suspect]
     Active Substance: PERFLUOROHEXYLOCTANE
     Dosage: ONE DROP IN EACH EYE FOUR TIMES A DAY
     Route: 047
     Dates: start: 2025
  3. SYSTANE (HYPROMELLOSE 2910 (4000 MPA.S)) [Concomitant]
     Active Substance: HYPROMELLOSE 2910 (4000 MPA.S)
     Indication: Product used for unknown indication
  4. HYDROXYCHLOROQUINE [Concomitant]
     Active Substance: HYDROXYCHLOROQUINE
     Indication: Product used for unknown indication

REACTIONS (9)
  - Eye pain [Unknown]
  - Patient dissatisfaction with treatment [Unknown]
  - Product use complaint [Unknown]
  - Accidental exposure to product [Unknown]
  - Exposure via skin contact [Unknown]
  - Liquid product physical issue [Unknown]
  - Product complaint [Unknown]
  - Inappropriate schedule of product administration [Unknown]
  - Product use issue [Unknown]

NARRATIVE: CASE EVENT DATE: 20250101
